FAERS Safety Report 6314971-X (Version None)
Quarter: 2009Q3

REPORT INFORMATION
  Report Type: 
  Country: None (occurrence: None)
  Receive Date: 20090819
  Receipt Date: 20090811
  Transmission Date: 20100115
  Serious: Yes (Other)
  Sender: FDA-Public Use
  Company Number: B0564004A

PATIENT
  Sex: Female

DRUGS (9)
  1. LAMICTAL [Suspect]
     Indication: BIPOLAR DISORDER
     Route: 048
  2. TERALITHE [Suspect]
     Indication: BIPOLAR DISORDER
     Dosage: 750MG PER DAY
     Route: 048
     Dates: start: 20081210
  3. SOLIAN [Suspect]
     Indication: BIPOLAR DISORDER
     Dosage: 1200MG PER DAY
     Route: 048
     Dates: start: 20081210
  4. NOZINAN [Suspect]
     Indication: BIPOLAR DISORDER
     Route: 048
     Dates: start: 20081101
  5. LEVOTHYROX [Concomitant]
     Indication: HYPOTHYROIDISM
  6. ZYPREXA [Concomitant]
  7. ABILIFY [Concomitant]
  8. LEPTICUR [Concomitant]
     Dates: start: 20081201, end: 20090101
  9. TRANDATE [Concomitant]
     Route: 065
     Dates: end: 20090301

REACTIONS (3)
  - MUSCLE CONTRACTURE [None]
  - MUSCULOSKELETAL STIFFNESS [None]
  - TREMOR [None]
